FAERS Safety Report 10585308 (Version 2)
Quarter: 2014Q4

REPORT INFORMATION
  Report Type: Spontaneous
  Country: FR (occurrence: None)
  Receive Date: 20141113
  Receipt Date: 20141125
  Transmission Date: 20150529
  Serious: Yes (Death)
  Sender: FDA-Public Use
  Company Number: 201410IM007372

PATIENT
  Age: 79 Year
  Sex: Male

DRUGS (4)
  1. ESBRIET [Suspect]
     Active Substance: PIRFENIDONE
     Indication: IDIOPATHIC PULMONARY FIBROSIS
     Route: 048
     Dates: start: 20131215
  2. KARDEGIC [Concomitant]
     Active Substance: ASPIRIN LYSINE
  3. TAHOR [Concomitant]
     Active Substance: ATORVASTATIN CALCIUM
  4. LASILIX [Concomitant]
     Active Substance: FUROSEMIDE

REACTIONS (1)
  - Unevaluable event [None]

NARRATIVE: CASE EVENT DATE: 2014
